FAERS Safety Report 21286587 (Version 4)
Quarter: 2022Q4

REPORT INFORMATION
  Report Type: Report from Study
  Country: IT (occurrence: IT)
  Receive Date: 20220902
  Receipt Date: 20221003
  Transmission Date: 20230112
  Serious: Yes (Hospitalization, Other)
  Sender: FDA-Public Use
  Company Number: None

PATIENT

DRUGS (3)
  1. PEGASPARGASE [Suspect]
     Active Substance: PEGASPARGASE
     Indication: Acute lymphocytic leukaemia
     Dosage: 3100 U/L
     Route: 042
     Dates: start: 20220711, end: 20220711
  2. VINCRISTINE [Suspect]
     Active Substance: VINCRISTINE
     Indication: Acute lymphocytic leukaemia
     Dosage: 1.85 MG/DAILY ON 11/07/2022 AND 18/07/2022.
     Route: 042
     Dates: start: 20220711, end: 20220718
  3. DECADRON [Concomitant]
     Active Substance: DEXAMETHASONE
     Indication: Acute lymphocytic leukaemia
     Dosage: 13 MG/DAILY FROM 04/07/2022 TO 24/07/2022. 6,5 MG/DAILY FROM 25/07/2022 TO 27/07/2022. 3,25 MG/DAILY
     Route: 048
     Dates: start: 20220704, end: 20220804

REACTIONS (4)
  - Neuropathy peripheral [Recovering/Resolving]
  - Hypogammaglobulinaemia [Not Recovered/Not Resolved]
  - Pancytopenia [Not Recovered/Not Resolved]
  - Febrile neutropenia [Recovered/Resolved]

NARRATIVE: CASE EVENT DATE: 20220729
